FAERS Safety Report 7723332-8 (Version None)
Quarter: 2011Q3

REPORT INFORMATION
  Report Type: 
  Country: None (occurrence: None)
  Receive Date: 20110901
  Receipt Date: 20110901
  Transmission Date: 20111222
  Serious: Yes (Hospitalization)
  Sender: FDA-Public Use
  Company Number: None

PATIENT
  Age: 63 Year
  Sex: Female
  Weight: 64.1 kg

DRUGS (7)
  1. LAMICTAL [Concomitant]
  2. ASPIRIN [Concomitant]
  3. CARBAMAZEPINE [Suspect]
     Indication: CONVULSION
     Dosage: 400 MG
     Route: 048
  4. SIMAVASTATIN [Concomitant]
  5. SYSTANE [Concomitant]
  6. LISINOPRIL [Concomitant]
  7. PHENOBARBITAL TAB [Concomitant]

REACTIONS (2)
  - DIZZINESS [None]
  - TOXICITY TO VARIOUS AGENTS [None]
